FAERS Safety Report 6928429-8 (Version None)
Quarter: 2010Q3

REPORT INFORMATION
  Report Type: 
  Country: None (occurrence: None)
  Receive Date: 20100817
  Receipt Date: 20100805
  Transmission Date: 20110219
  Serious: Yes (Other)
  Sender: FDA-Public Use
  Company Number: BR-PFIZER INC-2010098972

PATIENT
  Age: 71 Year
  Sex: Male

DRUGS (1)
  1. VIAGRA [Suspect]
     Dosage: UNK MG, UNK
     Route: 048
     Dates: start: 20050805, end: 20050101

REACTIONS (2)
  - CARDIAC DISORDER [None]
  - DIZZINESS [None]
